FAERS Safety Report 9407386 (Version 1)
Quarter: 2013Q3

REPORT INFORMATION
  Report Type: Spontaneous
  Country: US (occurrence: None)
  Receive Date: 20130717
  Receipt Date: 20130717
  Transmission Date: 20140515
  Serious: Yes (Death)
  Sender: FDA-Public Use
  Company Number: None

PATIENT
  Sex: Male

DRUGS (4)
  1. ZELBORAF [Suspect]
     Indication: MALIGNANT MELANOMA
     Route: 048
     Dates: start: 20130411
  2. POTASSIUM [Concomitant]
  3. RED YEAST CAP RICE [Concomitant]
  4. OMEGA 3 CAPS [Concomitant]

REACTIONS (1)
  - Death [None]
